FAERS Safety Report 5188294-9 (Version None)
Quarter: 2006Q4

REPORT INFORMATION
  Report Type: 
  Country: None (occurrence: None)
  Receive Date: 20061221
  Receipt Date: 20061220
  Transmission Date: 20070319
  Serious: Yes (Hospitalization)
  Sender: FDA-Public Use
  Company Number: FR-GLAXOSMITHKLINE-B0451443A

PATIENT
  Age: 70 Year
  Sex: Male

DRUGS (10)
  1. AUGMENTIN '125' [Suspect]
     Indication: SINUSITIS
     Dosage: 1G TWICE PER DAY
     Route: 048
     Dates: end: 20061109
  2. TAVANIC [Suspect]
     Indication: SINUSITIS
     Dosage: 500MG PER DAY
     Route: 048
     Dates: end: 20061116
  3. PYOSTACINE [Suspect]
     Indication: SINUSITIS
     Dosage: 1G TWICE PER DAY
     Route: 048
     Dates: start: 20061013, end: 20061031
  4. PERMIXON [Concomitant]
     Route: 065
  5. OMIX [Concomitant]
     Route: 065
  6. VALSARTAN AND HYDROCHLOROTHIAZIDE [Concomitant]
     Route: 065
  7. EUPRESSYL [Concomitant]
     Route: 065
  8. CELECTOL [Concomitant]
     Route: 065
  9. EFFEXOR [Concomitant]
     Route: 065
  10. ALLOPURINOL [Concomitant]
     Route: 065

REACTIONS (7)
  - BLOOD LACTATE DEHYDROGENASE INCREASED [None]
  - HAEMATURIA [None]
  - PROSTATIC DISORDER [None]
  - PROTEINURIA [None]
  - PYREXIA [None]
  - SINUS DISORDER [None]
  - SPLENOMEGALY [None]
